FAERS Safety Report 18961926 (Version 6)
Quarter: 2021Q3

REPORT INFORMATION
  Report Type: Report from Study
  Country: BR (occurrence: BR)
  Receive Date: 20210303
  Receipt Date: 20210817
  Transmission Date: 20211014
  Serious: Yes (Other)
  Sender: FDA-Public Use
  Company Number: NVSC2021BR040561

PATIENT
  Age: 38 Year
  Sex: Female

DRUGS (7)
  1. COSENTYX [Suspect]
     Active Substance: SECUKINUMAB
     Indication: ARTHRITIS
     Dosage: UNK, UNKNOWN
     Route: 065
     Dates: start: 20210210, end: 20210217
  2. COSENTYX [Suspect]
     Active Substance: SECUKINUMAB
     Dosage: UNK, UNKNOWN
     Route: 065
     Dates: start: 20210517
  3. AZITHROMYCIN DIHYDRATE. [Suspect]
     Active Substance: AZITHROMYCIN DIHYDRATE
     Indication: PRODUCT USED FOR UNKNOWN INDICATION
     Dosage: UNK, (NOT INFORMED)
     Route: 065
  4. FLUOXETINE HYDROCHLORIDE. [Suspect]
     Active Substance: FLUOXETINE HYDROCHLORIDE
     Indication: ENDOMETRIOSIS
     Dosage: UNK, A LONG TIME AGO, MUCH MORE BEFORE COSENTYX
     Route: 065
  5. COSENTYX [Suspect]
     Active Substance: SECUKINUMAB
     Indication: PSORIATIC ARTHROPATHY
     Dosage: UNK, UNKNOWN
     Route: 065
     Dates: start: 20210120
  6. COSENTYX [Suspect]
     Active Substance: SECUKINUMAB
     Dosage: 150 MG, UNKNOWN
     Route: 065
  7. FLUOXETINE HYDROCHLORIDE. [Suspect]
     Active Substance: FLUOXETINE HYDROCHLORIDE
     Indication: PERINATAL DEPRESSION

REACTIONS (28)
  - Pain [Not Recovered/Not Resolved]
  - Hypotension [Unknown]
  - Alopecia [Unknown]
  - Therapeutic response shortened [Unknown]
  - Swelling [Unknown]
  - Gait disturbance [Recovering/Resolving]
  - Arthralgia [Not Recovered/Not Resolved]
  - Somnolence [Not Recovered/Not Resolved]
  - Dizziness [Unknown]
  - Aphthous ulcer [Recovered/Resolved]
  - Oral pain [Recovering/Resolving]
  - Peripheral swelling [Unknown]
  - Decreased immune responsiveness [Unknown]
  - Feeling abnormal [Unknown]
  - Candida infection [Recovering/Resolving]
  - Depression [Unknown]
  - Pharyngitis [Recovering/Resolving]
  - Oropharyngeal pain [Recovered/Resolved]
  - Endometriosis [Unknown]
  - Ear pain [Not Recovered/Not Resolved]
  - Abdominal pain [Unknown]
  - Joint swelling [Unknown]
  - Muscle rigidity [Recovered/Resolved]
  - Product supply issue [Unknown]
  - Goitre [Not Recovered/Not Resolved]
  - Aphthous ulcer [Recovered/Resolved]
  - Malaise [Recovering/Resolving]
  - Product use in unapproved indication [Unknown]

NARRATIVE: CASE EVENT DATE: 202102
